FAERS Safety Report 11059416 (Version 1)
Quarter: 2015Q2

REPORT INFORMATION
  Report Type: Spontaneous
  Country: US (occurrence: None)
  Receive Date: 20150422
  Receipt Date: 20150422
  Transmission Date: 20150821
  Serious: Yes (Other)
  Sender: FDA-Public Use
  Company Number: None

PATIENT
  Age: 5 Year
  Sex: Male
  Weight: 17.69 kg

DRUGS (1)
  1. CEFDINIR. [Suspect]
     Active Substance: CEFDINIR
     Indication: OTITIS MEDIA
     Route: 048

REACTIONS (3)
  - Alopecia [None]
  - Hair colour changes [None]
  - Hair texture abnormal [None]

NARRATIVE: CASE EVENT DATE: 20150411
